FAERS Safety Report 10611681 (Version 3)
Quarter: 2014Q4

REPORT INFORMATION
  Report Type: Spontaneous
  Country: DE (occurrence: DE)
  Receive Date: 20141126
  Receipt Date: 20141218
  Transmission Date: 20150529
  Serious: Yes (Hospitalization, Other)
  Sender: FDA-Public Use
  Company Number: DE-PFIZER INC-2014320688

PATIENT
  Age: 75 Year
  Sex: Female

DRUGS (21)
  1. MELPERONE [Suspect]
     Active Substance: MELPERONE
     Dosage: 25 MG, DAILY
     Route: 048
     Dates: start: 20130318
  2. IBUPROFEN. [Concomitant]
     Active Substance: IBUPROFEN
     Dosage: 400-800 MG, 1X/DAY
     Dates: start: 20130518
  3. MIRTAZAPINE. [Suspect]
     Active Substance: MIRTAZAPINE
     Dosage: 7.5 MG, 1X/DAY
     Route: 048
     Dates: start: 20130314, end: 20130319
  4. AMLODIPINE BESILATE [Suspect]
     Active Substance: AMLODIPINE BESYLATE
     Dosage: 5 MG, 1X/DAY
     Route: 048
  5. IBUPROFEN. [Concomitant]
     Active Substance: IBUPROFEN
     Dosage: 1400 MG, 1X/DAY
     Route: 048
     Dates: start: 20130409, end: 20130409
  6. PANTOPRAZOLE [Suspect]
     Active Substance: PANTOPRAZOLE SODIUM
     Dosage: 40 MG, 1X/DAY
     Route: 048
  7. VENLAFAXINE [Concomitant]
     Active Substance: VENLAFAXINE HYDROCHLORIDE
     Dosage: 37.5 MG, 1X/DAY
     Route: 048
     Dates: start: 20130417, end: 20130422
  8. IBUPROFEN. [Concomitant]
     Active Substance: IBUPROFEN
     Dosage: 1800 MG, 1X/DAY
     Route: 048
     Dates: start: 20130410, end: 20130418
  9. MIRTAZAPINE. [Suspect]
     Active Substance: MIRTAZAPINE
     Dosage: 15 MG, 1X/DAY
     Route: 048
     Dates: start: 20130320, end: 20130401
  10. MIRTAZAPINE. [Suspect]
     Active Substance: MIRTAZAPINE
     Dosage: 30 MG, 1X/DAY
     Route: 048
     Dates: start: 20130402, end: 20130424
  11. MIRTAZAPINE. [Suspect]
     Active Substance: MIRTAZAPINE
     Dosage: 7.5 MG, DAILY
     Route: 048
     Dates: start: 20130429, end: 20130501
  12. RAMIPRIL. [Suspect]
     Active Substance: RAMIPRIL
     Dosage: 10 MG, 1X/DAY
     Route: 048
  13. IBUPROFEN. [Concomitant]
     Active Substance: IBUPROFEN
     Dosage: 400-800 MG, AS NEEDED
     Route: 048
     Dates: end: 20130402
  14. IBUPROFEN. [Concomitant]
     Active Substance: IBUPROFEN
     Dosage: 400 MG, 1X/DAY
     Route: 048
     Dates: start: 20130403, end: 20130405
  15. IBUPROFEN. [Concomitant]
     Active Substance: IBUPROFEN
     Dosage: 1200 MG, 1X/DAY
     Route: 048
     Dates: start: 20130419, end: 20130517
  16. VENLAFAXINE [Concomitant]
     Active Substance: VENLAFAXINE HYDROCHLORIDE
     Dosage: 150 MG, 1X/DAY
     Route: 048
     Dates: start: 20130509
  17. BISOPROLOL [Concomitant]
     Active Substance: BISOPROLOL
     Dosage: 5 MG, 1X/DAY
     Route: 048
  18. MIRTAZAPINE. [Suspect]
     Active Substance: MIRTAZAPINE
     Dosage: 15 MG, DAILY
     Route: 048
     Dates: start: 20130425, end: 20130428
  19. VENLAFAXINE [Concomitant]
     Active Substance: VENLAFAXINE HYDROCHLORIDE
     Dosage: 75 MG, 1X/DAY
     Route: 048
     Dates: start: 20130423, end: 20130506
  20. IBUPROFEN. [Concomitant]
     Active Substance: IBUPROFEN
     Dosage: 1200 MG, 1X/DAY
     Route: 048
     Dates: start: 20130406, end: 20130408
  21. VENLAFAXINE [Concomitant]
     Active Substance: VENLAFAXINE HYDROCHLORIDE
     Dosage: 112.5 MG, 1X/DAY
     Route: 048
     Dates: start: 20130507, end: 20130508

REACTIONS (3)
  - Malaise [Unknown]
  - Pain [Unknown]
  - Polyneuropathy [Recovered/Resolved]

NARRATIVE: CASE EVENT DATE: 20130403
